FAERS Safety Report 5747068-8 (Version None)
Quarter: 2008Q2

REPORT INFORMATION
  Report Type: 
  Country: None (occurrence: None)
  Receive Date: 20080522
  Receipt Date: 20080515
  Transmission Date: 20081010
  Serious: Yes (Hospitalization)
  Sender: FDA-Public Use
  Company Number: PHEH2008US04632

PATIENT
  Sex: Female

DRUGS (1)
  1. RECLAST [Suspect]
     Dates: start: 20080502

REACTIONS (3)
  - COUGH [None]
  - HEADACHE [None]
  - PAIN IN JAW [None]
